FAERS Safety Report 23693618 (Version 1)
Quarter: 2024Q2

REPORT INFORMATION
  Report Type: Report from Study
  Country: US (occurrence: US)
  Receive Date: 20240401
  Receipt Date: 20240401
  Transmission Date: 20240716
  Serious: Yes (Other)
  Sender: FDA-Public Use
  Company Number: US-ABBVIE-5699028

PATIENT
  Sex: Female

DRUGS (1)
  1. RINVOQ [Suspect]
     Active Substance: UPADACITINIB
     Indication: Rheumatoid arthritis
     Route: 048
     Dates: start: 20211120

REACTIONS (6)
  - Surgery [Unknown]
  - Post procedural complication [Unknown]
  - Renal disorder [Unknown]
  - Arthritis [Unknown]
  - Musculoskeletal disorder [Unknown]
  - Intentional product misuse [Unknown]
